FAERS Safety Report 9218592 (Version 1)
Quarter: 2013Q1

REPORT INFORMATION
  Report Type: Spontaneous
  Country: US (occurrence: None)
  Receive Date: 20120827
  Receipt Date: 20120827
  Transmission Date: 20140127
  Serious: No
  Sender: FDA-Public Use
  Company Number: KV201200147

PATIENT
  Age: 34 Year
  Sex: Female

DRUGS (7)
  1. MAKENA (HYDROXYPROGESTERONE CAPROATE 250 MG/ML) INJECTION, 250 MG/ML [Suspect]
     Indication: PREMATURE DELIVERY
     Route: 030
     Dates: start: 20120424, end: 20120613
  2. ADVAIR (FLUTICASONE PROPIONATE, SALMETEROL XINAFOATE [Concomitant]
  3. AOV VITAMIN D3 (COLECALCIFEROL) [Concomitant]
  4. ERYTHROMYCIN (ERYTHROMYCIN) [Concomitant]
  5. PERCOCET /00446701/ (OXYCODONE HYDROCHLORIDE, OXYCODONE TEREPHTHALATE, PARACETAMOL) [Concomitant]
  6. REGLAN /00041901/ (METOCLOPRAMIDE) [Concomitant]
  7. PRENATAL VITAMINS /01549301/ (ASCORBIC ACID, BIOTIN, MINERALS NOS, NICOTINIC ACID, RETINOL, TOCOPHEROL, VITAMIN B NOS, VITAMIN D NOS) [Concomitant]

REACTIONS (2)
  - Deep vein thrombosis [None]
  - Sinusitis [None]
